FAERS Safety Report 18584143 (Version 2)
Quarter: 2022Q3

REPORT INFORMATION
  Report Type: Spontaneous
  Country: JP (occurrence: JP)
  Receive Date: 20201207
  Receipt Date: 20220713
  Transmission Date: 20221027
  Serious: Yes (Other)
  Sender: FDA-Public Use
  Company Number: JP-GSKNCCC-CASE-01074920_AE-36296

PATIENT

DRUGS (16)
  1. VALTREX [Suspect]
     Active Substance: VALACYCLOVIR HYDROCHLORIDE
     Indication: Herpes zoster
     Dosage: 1000 MG, TID
     Route: 048
     Dates: start: 202010, end: 202010
  2. LUDIOMIL [Concomitant]
     Active Substance: MAPROTILINE HYDROCHLORIDE
     Dosage: UNK
  3. LORMETAZEPAM [Concomitant]
     Active Substance: LORMETAZEPAM
     Dosage: UNK
  4. HALCION [Concomitant]
     Active Substance: TRIAZOLAM
     Dosage: UNK
  5. DIETARY SUPPLEMENT\PROBIOTICS [Concomitant]
     Active Substance: DIETARY SUPPLEMENT\PROBIOTICS
     Dosage: UNK
  6. AMINO ACIDS\DEXTROSE\ELECTROLYTES NOS [Concomitant]
     Active Substance: AMINO ACIDS\DEXTROSE\ELECTROLYTES NOS
     Dosage: UNK
  7. CARBIDOPA\LEVODOPA [Concomitant]
     Active Substance: CARBIDOPA\LEVODOPA
     Dosage: UNK
  8. ISTRADEFYLLINE [Concomitant]
     Active Substance: ISTRADEFYLLINE
     Dosage: UNK
  9. NEUPRO [Concomitant]
     Active Substance: ROTIGOTINE
     Dosage: UNK
  10. HERBALS [Concomitant]
     Active Substance: HERBALS
     Dosage: UNK
  11. MAGNESIUM OXIDE [Concomitant]
     Active Substance: MAGNESIUM OXIDE
     Dosage: UNK
  12. PERIACTIN [Concomitant]
     Active Substance: CYPROHEPTADINE HYDROCHLORIDE
     Dosage: UNK
  13. WHITE PETROLATUM [Concomitant]
     Active Substance: PETROLATUM
     Dosage: UNK
  14. EFINACONAZOLE [Concomitant]
     Active Substance: EFINACONAZOLE
     Dosage: UNK
  15. CALONAL [Concomitant]
     Active Substance: ACETAMINOPHEN
     Dosage: UNK
  16. VIDARABINE [Concomitant]
     Active Substance: VIDARABINE
     Dosage: UNK

REACTIONS (3)
  - Parkinson^s disease [Unknown]
  - Purpura [Unknown]
  - Incorrect product administration duration [Unknown]

NARRATIVE: CASE EVENT DATE: 20201001
